FAERS Safety Report 11004785 (Version 1)
Quarter: 2015Q2

REPORT INFORMATION
  Report Type: Spontaneous
  Country: US (occurrence: US)
  Receive Date: 20150409
  Receipt Date: 20150409
  Transmission Date: 20150821
  Serious: Yes (Disabling, Other)
  Sender: FDA-Public Use
  Company Number: PHEH2015US006538

PATIENT
  Sex: Female
  Weight: 76.2 kg

DRUGS (2)
  1. ZOMETA [Suspect]
     Active Substance: ZOLEDRONIC ACID
     Indication: BREAST CANCER
     Dosage: 4 MG, EVERY SIX MONTHS
     Route: 042
     Dates: start: 20140827
  2. SOLU-MEDROL [Concomitant]
     Active Substance: METHYLPREDNISOLONE SODIUM SUCCINATE
     Indication: PRODUCT USED FOR UNKNOWN INDICATION
     Dosage: 4 MG, UNK
     Route: 065
     Dates: start: 20150227

REACTIONS (6)
  - Myalgia [Recovering/Resolving]
  - Atrial fibrillation [Recovered/Resolved]
  - Pelvic pain [Recovering/Resolving]
  - Bone pain [Recovering/Resolving]
  - Cystitis [Unknown]
  - Back pain [Recovering/Resolving]
